FAERS Safety Report 22284058 (Version 2)
Quarter: 2023Q2

REPORT INFORMATION
  Report Type: Spontaneous
  Country: US (occurrence: US)
  Receive Date: 20230504
  Receipt Date: 20230519
  Transmission Date: 20230721
  Serious: Yes (Other)
  Sender: FDA-Public Use
  Company Number: US-TEVA-2023-US-2882035

PATIENT
  Age: 25 Year
  Sex: Male

DRUGS (5)
  1. PREDNISONE [Suspect]
     Active Substance: PREDNISONE
     Indication: Choroiditis
     Dosage: 20 MILLIGRAM DAILY; ONCE A DAY , ADDITIONAL INFO: PREDNISONE TAPERED BY 5 MG PER WEEK
     Route: 048
  2. AZATHIOPRINE [Suspect]
     Active Substance: AZATHIOPRINE
     Indication: Choroiditis
     Dosage: 200 MILLIGRAM DAILY; ONCE A DAY
     Route: 065
  3. FLUORESCEIN [Suspect]
     Active Substance: FLUORESCEIN
     Indication: Product used for unknown indication
     Route: 065
  4. VALACYCLOVIR [Concomitant]
     Active Substance: VALACYCLOVIR HYDROCHLORIDE
     Indication: Choroiditis
     Dosage: 2 GRAM DAILY; 1 GRAM TWICE A DAY
     Route: 065
  5. ADALIMUMAB [Concomitant]
     Active Substance: ADALIMUMAB
     Indication: Choroiditis
     Dosage: 40 MG EVERY 2 WEEKS
     Route: 058

REACTIONS (5)
  - Drug hypersensitivity [Unknown]
  - Urticaria [Unknown]
  - Dyspnoea [Unknown]
  - Leukopenia [Unknown]
  - Drug ineffective [Unknown]
